FAERS Safety Report 8154451-2 (Version None)
Quarter: 2012Q1

REPORT INFORMATION
  Report Type: 
  Country: None (occurrence: None)
  Receive Date: 20120221
  Receipt Date: 20120210
  Transmission Date: 20120608
  Serious: Yes (Hospitalization)
  Sender: FDA-Public Use
  Company Number: GB-TEVA-289902ISR

PATIENT
  Age: 62 Year
  Sex: Male
  Weight: 72.5 kg

DRUGS (2)
  1. IRINOTECAN HCL [Suspect]
     Indication: COLORECTAL CANCER METASTATIC
     Route: 042
     Dates: start: 20110426, end: 20110607
  2. FLUOROURACIL [Suspect]
     Indication: COLORECTAL CANCER METASTATIC
     Dosage: 750MG BOLUS AND 4440MG INFUSION OVER 46 HOURS
     Route: 042
     Dates: start: 20110426, end: 20110607

REACTIONS (1)
  - URINARY RETENTION [None]
